FAERS Safety Report 24378293 (Version 1)
Quarter: 2024Q3

REPORT INFORMATION
  Report Type: Spontaneous
  Country: US (occurrence: None)
  Receive Date: 20240927
  Receipt Date: 20240927
  Transmission Date: 20241017
  Serious: Yes (Disabling)
  Sender: Public
  Company Number: None

PATIENT
  Age: 68 Year
  Sex: Female

DRUGS (3)
  1. BRIMONIDINE TARTRATE [Suspect]
     Active Substance: BRIMONIDINE TARTRATE
     Indication: Glaucoma
     Dosage: 1 DROPP 2 TIMES A DAY EACH EYE IN THE EYE 1 DROP?
     Route: 047
     Dates: start: 20230728, end: 20230728
  2. Timolol Mal .05% [Concomitant]
  3. Alive Multivit + Min. [Concomitant]

REACTIONS (7)
  - Instillation site discolouration [None]
  - Dizziness [None]
  - Nausea [None]
  - Chest discomfort [None]
  - Heart rate decreased [None]
  - Therapy cessation [None]
  - Photopsia [None]

NARRATIVE: CASE EVENT DATE: 20230728
